FAERS Safety Report 25322017 (Version 1)
Quarter: 2025Q2

REPORT INFORMATION
  Report Type: Report from Study
  Country: CN (occurrence: CN)
  Receive Date: 20250516
  Receipt Date: 20250516
  Transmission Date: 20250716
  Serious: Yes (Other)
  Sender: ROCHE
  Company Number: CN-ROCHE-10000281595

PATIENT
  Age: 63 Year
  Sex: Female
  Weight: 57.7 kg

DRUGS (28)
  1. POLATUZUMAB VEDOTIN [Suspect]
     Active Substance: POLATUZUMAB VEDOTIN
     Indication: Diffuse large B-cell lymphoma
     Route: 042
     Dates: start: 20240621, end: 20240621
  2. POLATUZUMAB VEDOTIN [Suspect]
     Active Substance: POLATUZUMAB VEDOTIN
     Route: 042
     Dates: start: 20240811, end: 20240811
  3. RITUXIMAB [Suspect]
     Active Substance: RITUXIMAB
     Indication: Diffuse large B-cell lymphoma
     Route: 042
     Dates: start: 20240810, end: 20240810
  4. RITUXIMAB [Suspect]
     Active Substance: RITUXIMAB
     Indication: Diffuse large B-cell lymphoma
     Route: 042
     Dates: start: 20240620, end: 20240620
  5. EPIRUBICIN [Suspect]
     Active Substance: EPIRUBICIN
     Indication: Diffuse large B-cell lymphoma
     Route: 042
     Dates: start: 20240621, end: 20240621
  6. CYCLOPHOSPHAMIDE [Suspect]
     Active Substance: CYCLOPHOSPHAMIDE
     Indication: Diffuse large B-cell lymphoma
     Route: 042
     Dates: start: 20240621, end: 20240621
  7. CYCLOPHOSPHAMIDE [Suspect]
     Active Substance: CYCLOPHOSPHAMIDE
     Route: 042
     Dates: start: 20240811, end: 20240811
  8. PREDNISONE [Suspect]
     Active Substance: PREDNISONE
     Indication: Diffuse large B-cell lymphoma
     Route: 048
     Dates: start: 20240621, end: 20240625
  9. PREDNISONE [Suspect]
     Active Substance: PREDNISONE
     Route: 048
     Dates: start: 20240811, end: 20240815
  10. ACALABRUTINIB [Suspect]
     Active Substance: ACALABRUTINIB
     Indication: Diffuse large B-cell lymphoma
     Route: 048
     Dates: start: 20240811, end: 20240815
  11. DOXORUBICIN HYDROCHLORIDE [Suspect]
     Active Substance: DOXORUBICIN HYDROCHLORIDE
     Indication: Diffuse large B-cell lymphoma
     Route: 042
     Dates: start: 20240811, end: 20240811
  12. LEVOTHYROXINE SODIUM [Concomitant]
     Active Substance: LEVOTHYROXINE SODIUM
     Route: 048
  13. ETV [Concomitant]
     Route: 048
     Dates: start: 20240618
  14. LEUCOGEN [Concomitant]
     Active Substance: LEUCOGEN
     Route: 048
     Dates: start: 20240621
  15. Compound acetaminophen tablets [Concomitant]
     Route: 048
     Dates: start: 20240905, end: 20240905
  16. Compound acetaminophen tablets [Concomitant]
     Route: 048
     Dates: start: 20240928, end: 20240929
  17. PROMETHAZINE HYDROCHLORIDE [Concomitant]
     Active Substance: PROMETHAZINE HYDROCHLORIDE
     Route: 030
     Dates: start: 20240904, end: 20240905
  18. Pegylated recombinant human cell stimulating factor injection [Concomitant]
     Dosage: ROUTE : IH
     Route: 050
     Dates: start: 20240905, end: 20240905
  19. Pegylated recombinant human cell stimulating factor injection [Concomitant]
     Dosage: ROUTE: IH
     Route: 050
     Dates: start: 20240928, end: 20240930
  20. METHYLPREDNISOLONE SODIUM SUCCINATE [Concomitant]
     Active Substance: METHYLPREDNISOLONE SODIUM SUCCINATE
     Route: 042
     Dates: start: 20240904, end: 20240904
  21. METHYLPREDNISOLONE SODIUM SUCCINATE [Concomitant]
     Active Substance: METHYLPREDNISOLONE SODIUM SUCCINATE
     Route: 042
     Dates: start: 20240928, end: 20240928
  22. Omeprazole enteric-coated capsules [Concomitant]
     Route: 048
     Dates: start: 20240904, end: 20240904
  23. Omeprazole enteric-coated capsules [Concomitant]
     Route: 048
     Dates: start: 20240905, end: 20240909
  24. Omeprazole enteric-coated capsules [Concomitant]
     Route: 048
     Dates: start: 20240928, end: 20241003
  25. Palonosetron hydrochloride capsules [Concomitant]
     Route: 048
     Dates: start: 20240904, end: 20240904
  26. CEFUROXIME AXETIL [Concomitant]
     Active Substance: CEFUROXIME AXETIL
     Route: 048
     Dates: start: 20240905
  27. HEPARIN SODIUM [Concomitant]
     Active Substance: HEPARIN SODIUM
     Route: 042
     Dates: start: 20240905, end: 20240905
  28. Promethazine needle [Concomitant]
     Route: 030
     Dates: start: 20240928, end: 20240929

REACTIONS (1)
  - Myelosuppression [Recovered/Resolved]

NARRATIVE: CASE EVENT DATE: 20240901
